FAERS Safety Report 24913327 (Version 1)
Quarter: 2025Q1

REPORT INFORMATION
  Report Type: Spontaneous
  Country: CN (occurrence: CN)
  Receive Date: 20250201
  Receipt Date: 20250201
  Transmission Date: 20250409
  Serious: Yes (Hospitalization, Disabling)
  Sender: AMGEN
  Company Number: CN-AMGEN-CHNSP2025016961

PATIENT
  Age: 65 Year
  Sex: Female
  Weight: 55 kg

DRUGS (1)
  1. CARFILZOMIB [Suspect]
     Active Substance: CARFILZOMIB
     Indication: Plasma cell myeloma
     Route: 065
     Dates: start: 20241203, end: 20241204

REACTIONS (3)
  - Myelosuppression [Not Recovered/Not Resolved]
  - Granulocytopenia [Not Recovered/Not Resolved]
  - Oedema peripheral [Not Recovered/Not Resolved]

NARRATIVE: CASE EVENT DATE: 20241207
